FAERS Safety Report 13089579 (Version 1)
Quarter: 2017Q1

REPORT INFORMATION
  Report Type: Spontaneous
  Country: US (occurrence: US)
  Receive Date: 20170105
  Receipt Date: 20170105
  Transmission Date: 20170428
  Serious: No
  Sender: FDA-Public Use
  Company Number: US-PFIZER INC-2017003712

PATIENT
  Age: 56 Year
  Sex: Male
  Weight: 109 kg

DRUGS (5)
  1. CADUET [Suspect]
     Active Substance: AMLODIPINE BESYLATE\ATORVASTATIN CALCIUM
     Dosage: 5 MG AMLODIPINE - 10 MG ATORVASTATIN
     Dates: start: 201612
  2. CADUET [Suspect]
     Active Substance: AMLODIPINE BESYLATE\ATORVASTATIN CALCIUM
     Indication: BLOOD CHOLESTEROL
     Dosage: 10 MG AMLODIPINE - 10 MG ATORVASTATIN
     Route: 048
     Dates: start: 201611
  3. NEXIUM [Concomitant]
     Active Substance: ESOMEPRAZOLE MAGNESIUM
     Indication: DYSPEPSIA
     Dosage: 40 MG, 1X/DAY
  4. CADUET [Suspect]
     Active Substance: AMLODIPINE BESYLATE\ATORVASTATIN CALCIUM
     Indication: HYPERTENSION
     Dosage: 5 MG AMLODIPINE - 10 MG ATORVASTATIN
     Dates: end: 201611
  5. TOVIAZ [Concomitant]
     Active Substance: FESOTERODINE FUMARATE
     Dosage: 8 MG, 1X/DAY

REACTIONS (1)
  - Peripheral swelling [Recovered/Resolved]
